FAERS Safety Report 4994313-2 (Version None)
Quarter: 2006Q2

REPORT INFORMATION
  Report Type: 
  Country: None (occurrence: None)
  Receive Date: 20060503
  Receipt Date: 20060418
  Transmission Date: 20061013
  Serious: Yes (Life-Threatening, Hospitalization)
  Sender: FDA-Public Use
  Company Number: LU200604003869

PATIENT
  Sex: Male

DRUGS (1)
  1. DULOXETINE HYDROCHLORIDE [Suspect]
     Dosage: ORAL
     Route: 048

REACTIONS (5)
  - BRAIN OEDEMA [None]
  - COMA [None]
  - GENERALISED OEDEMA [None]
  - GRAND MAL CONVULSION [None]
  - HYPONATRAEMIA [None]
